FAERS Safety Report 16565903 (Version 1)
Quarter: 2019Q3

REPORT INFORMATION
  Report Type: Spontaneous
  Country: US (occurrence: US)
  Receive Date: 20190712
  Receipt Date: 20190712
  Transmission Date: 20191004
  Serious: No
  Sender: FDA-Public Use
  Company Number: US-PFIZER INC-2019293194

PATIENT
  Age: 64 Year
  Sex: Female

DRUGS (6)
  1. AMPICILLIN SODIUM. [Suspect]
     Active Substance: AMPICILLIN SODIUM
     Dosage: UNK
  2. AUGMENTIN [Suspect]
     Active Substance: AMOXICILLIN\CLAVULANATE POTASSIUM
     Dosage: UNK
  3. HUMIBID [Suspect]
     Active Substance: GUAIFENESIN
     Dosage: UNK
  4. ENTEX [GUAIFENESIN;PHENYLEPHRINE HYDROCHLORIDE] [Suspect]
     Active Substance: GUAIFENESIN\PHENYLEPHRINE HYDROCHLORIDE
     Dosage: UNK
  5. LEVAQUIN [Suspect]
     Active Substance: LEVOFLOXACIN
     Dosage: UNK
  6. CEFZIL [Suspect]
     Active Substance: CEFPROZIL
     Dosage: UNK

REACTIONS (4)
  - Urticaria [Unknown]
  - Hypersensitivity [Unknown]
  - Pruritus [Unknown]
  - Rash [Unknown]
